FAERS Safety Report 8780108 (Version 1)
Quarter: 2012Q4

REPORT INFORMATION
  Report Type: Spontaneous
  Country: CA (occurrence: None)
  Receive Date: 20120831
  Receipt Date: 20120831
  Transmission Date: 20130627
  Serious: Yes (Other)
  Sender: FDA-Public Use
  Company Number: None

PATIENT
  Age: 31 Year
  Sex: Female
  Weight: 79.38 kg

DRUGS (3)
  1. LYRICA [Suspect]
     Route: 048
     Dates: start: 20120320, end: 20120803
  2. TRIDURAL [Suspect]
     Route: 048
     Dates: start: 20120320, end: 20120803
  3. AMITRIPTYLINE [Suspect]
     Route: 048
     Dates: start: 20120320, end: 20120803

REACTIONS (1)
  - Hallucination [None]
